FAERS Safety Report 10250493 (Version 2)
Quarter: 2014Q3

REPORT INFORMATION
  Report Type: Report from Study
  Country: AU (occurrence: AU)
  Receive Date: 20140620
  Receipt Date: 20140711
  Transmission Date: 20150326
  Serious: Yes (Hospitalization)
  Sender: FDA-Public Use
  Company Number: AU-BRISTOL-MYERS SQUIBB COMPANY-20690939

PATIENT
  Age: 83 Year
  Sex: Female
  Weight: 70 kg

DRUGS (11)
  1. ALENDRONATE SODIUM. [Concomitant]
     Active Substance: ALENDRONATE SODIUM
  2. NORMACOL [Concomitant]
     Active Substance: KARAYA GUM
  3. ORENCIA [Suspect]
     Active Substance: ABATACEPT
     Indication: RHEUMATOID ARTHRITIS
     Route: 042
  4. METHOTREXATE [Concomitant]
     Active Substance: METHOTREXATE
  5. SIGMAXIN [Concomitant]
     Active Substance: DIGOXIN
  6. FOLIC ACID. [Concomitant]
     Active Substance: FOLIC ACID
  7. CALTRATE [Concomitant]
     Active Substance: CALCIUM CARBONATE
  8. LOVAN [Concomitant]
     Active Substance: FLUOXETINE HYDROCHLORIDE
  9. ASPRO [Concomitant]
     Active Substance: ASPIRIN\SODIUM BICARBONATE
  10. MACU-VISION [Concomitant]
  11. TRITACE [Concomitant]
     Active Substance: RAMIPRIL

REACTIONS (2)
  - Fall [Unknown]
  - Localised infection [Recovering/Resolving]

NARRATIVE: CASE EVENT DATE: 20140416
